FAERS Safety Report 10726088 (Version 1)
Quarter: 2015Q1

REPORT INFORMATION
  Report Type: Spontaneous
  Country: JP (occurrence: JP)
  Receive Date: 20150121
  Receipt Date: 20150121
  Transmission Date: 20150721
  Serious: Yes (Other)
  Sender: FDA-Public Use
  Company Number: JP-BAYER-2015-006815

PATIENT
  Sex: Female
  Weight: 2 kg

DRUGS (20)
  1. ADALAT [Suspect]
     Active Substance: NIFEDIPINE
     Dosage: 10 MG, 6ID
     Route: 064
  2. CEFMETAZOLE SODIUM [Concomitant]
     Active Substance: CEFMETAZOLE SODIUM
     Dosage: DAILY DOSE 3 G
     Route: 064
  3. ADALAT [Suspect]
     Active Substance: NIFEDIPINE
     Dosage: 10 MG, TID
     Route: 064
  4. ADALAT [Suspect]
     Active Substance: NIFEDIPINE
     Dosage: DAILY DOSE 70 MG
     Route: 064
  5. ADALAT [Suspect]
     Active Substance: NIFEDIPINE
     Dosage: 10 MG, TID
     Route: 064
  6. ADALAT [Suspect]
     Active Substance: NIFEDIPINE
     Dosage: 10 MG, 6ID
     Route: 064
  7. ADALAT [Suspect]
     Active Substance: NIFEDIPINE
     Dosage: DAILY DOSE 70 MG
     Route: 064
  8. MAGNESIUM SULFATE. [Concomitant]
     Active Substance: MAGNESIUM SULFATE
     Route: 064
  9. AMPICILLIN [Concomitant]
     Active Substance: AMPICILLIN
     Dosage: DAILY DOSE 3 G
     Route: 064
  10. AMPICILLIN [Concomitant]
     Active Substance: AMPICILLIN
     Dosage: DAILY DOSE 3 G
     Route: 064
  11. METHADONE [Concomitant]
     Active Substance: METHADONE HYDROCHLORIDE
     Dosage: DAILY DOSE 24 MG
     Route: 064
  12. METHADONE [Concomitant]
     Active Substance: METHADONE HYDROCHLORIDE
     Dosage: DAILY DOSE 24 MG
     Route: 064
  13. CEFMETAZOLE SODIUM [Concomitant]
     Active Substance: CEFMETAZOLE SODIUM
     Dosage: DAILY DOSE 3 G
     Route: 064
  14. ADALAT [Suspect]
     Active Substance: NIFEDIPINE
     Dosage: 10 MG, TID
     Route: 064
  15. ULINASTATIN [Concomitant]
     Active Substance: ULINASTATIN
     Dosage: DAILY DOSE 5000 U
     Route: 064
  16. ADALAT [Suspect]
     Active Substance: NIFEDIPINE
     Dosage: 10 MG, TID
     Route: 064
  17. RITODRINE [Concomitant]
     Active Substance: RITODRINE
     Dosage: 1 DF, QID
     Route: 064
  18. RITODRINE [Concomitant]
     Active Substance: RITODRINE
     Dosage: 1 DF, QID
     Route: 064
  19. ULINASTATIN [Concomitant]
     Active Substance: ULINASTATIN
     Dosage: DAILY DOSE 5000 U
     Route: 064
  20. MAGNESIUM SULFATE. [Concomitant]
     Active Substance: MAGNESIUM SULFATE
     Route: 064

REACTIONS (1)
  - Low birth weight baby [None]
